FAERS Safety Report 18966218 (Version 1)
Quarter: 2021Q1

REPORT INFORMATION
  Report Type: Spontaneous
  Country: US (occurrence: US)
  Receive Date: 20210303
  Receipt Date: 20210303
  Transmission Date: 20210420
  Serious: No
  Sender: FDA-Public Use
  Company Number: US-SUNOVION-2021SUN000590

PATIENT
  Age: 51 Year
  Sex: Female

DRUGS (4)
  1. LATUDA [Suspect]
     Active Substance: LURASIDONE HYDROCHLORIDE
     Indication: DEPRESSION
     Dosage: 20 MG, QD
     Route: 048
     Dates: start: 202101
  2. LATUDA [Suspect]
     Active Substance: LURASIDONE HYDROCHLORIDE
     Indication: GENERALISED ANXIETY DISORDER
  3. ATIVAN [Concomitant]
     Active Substance: LORAZEPAM
  4. TRINTELLIX [Concomitant]
     Active Substance: VORTIOXETINE HYDROBROMIDE

REACTIONS (6)
  - Impaired self-care [Recovered/Resolved]
  - Crying [Recovered/Resolved]
  - Off label use [Unknown]
  - Restlessness [Recovered/Resolved]
  - Depression [Recovered/Resolved]
  - Time perception altered [Recovered/Resolved]
